FAERS Safety Report 22264345 (Version 1)
Quarter: 2023Q2

REPORT INFORMATION
  Report Type: Spontaneous
  Country: US (occurrence: None)
  Receive Date: 20230427
  Receipt Date: 20230427
  Transmission Date: 20230722
  Serious: Yes (Hospitalization, Disabling)
  Sender: FDA-Public Use
  Company Number: None

PATIENT
  Age: 71 Year
  Sex: Male
  Weight: 63 kg

DRUGS (8)
  1. SODIUM CHLORIDE [Suspect]
     Active Substance: SODIUM CHLORIDE
     Indication: Corneal oedema
     Dosage: OTHER QUANTITY : 1 DROP(S);?FREQUENCY : AS NEEDED;?
     Route: 047
     Dates: start: 20190831, end: 20221227
  2. Pred Forte eye drops [Concomitant]
  3. PRAVASTATIN [Concomitant]
     Active Substance: PRAVASTATIN
  4. PAROXETINE [Concomitant]
     Active Substance: PAROXETINE
  5. CLONAZEPAM [Concomitant]
     Active Substance: CLONAZEPAM
  6. DEVICE [Concomitant]
     Active Substance: DEVICE
  7. VITAMINS [Concomitant]
     Active Substance: VITAMINS
  8. psyllium husk capsules [Concomitant]

REACTIONS (3)
  - Corneal infection [None]
  - Blindness unilateral [None]
  - Eye excision [None]

NARRATIVE: CASE EVENT DATE: 20221227
